FAERS Safety Report 7544120-1 (Version None)
Quarter: 2011Q2

REPORT INFORMATION
  Report Type: 
  Country: None (occurrence: None)
  Receive Date: 20110613
  Receipt Date: 20051101
  Transmission Date: 20111010
  Serious: Yes (Death, Other)
  Sender: FDA-Public Use
  Company Number: PHFR2005GB03299

PATIENT
  Sex: Male

DRUGS (1)
  1. CLOZAPINE [Suspect]
     Indication: SCHIZOPHRENIA
     Route: 048
     Dates: start: 20030121

REACTIONS (20)
  - LEFT VENTRICULAR HYPERTROPHY [None]
  - LUNG DISORDER [None]
  - CYSTITIS [None]
  - PULMONARY CONGESTION [None]
  - CARDIAC FAILURE [None]
  - CARDIOMEGALY [None]
  - GOITRE [None]
  - BRONCHITIS CHRONIC [None]
  - HYPERTENSIVE HEART DISEASE [None]
  - CORONARY OSTIAL STENOSIS [None]
  - PLEURAL ADHESION [None]
  - OEDEMA MUCOSAL [None]
  - NEPHROSCLEROSIS [None]
  - ARTERIOSCLEROSIS CORONARY ARTERY [None]
  - PERICARDIAL HAEMORRHAGE [None]
  - FATIGUE [None]
  - CORONARY ARTERY STENOSIS [None]
  - KIDNEY ENLARGEMENT [None]
  - HEPATIC STEATOSIS [None]
  - OBESITY [None]
